FAERS Safety Report 8500246-7 (Version None)
Quarter: 2012Q3

REPORT INFORMATION
  Report Type: 
  Country: None (occurrence: None)
  Receive Date: 20120710
  Receipt Date: 20120703
  Transmission Date: 20120928
  Serious: Yes (Hospitalization)
  Sender: FDA-Public Use
  Company Number: AU-ALLERGAN-1205225US

PATIENT
  Age: 58 Year
  Sex: Female

DRUGS (4)
  1. BACLOFEN [Concomitant]
     Indication: MUSCLE SPASTICITY
     Dosage: 10 MG, UNK
  2. LIPITOR [Concomitant]
     Indication: BLOOD CHOLESTEROL INCREASED
     Dosage: 20 MG, UNK
  3. GABAPENTIN [Concomitant]
     Indication: NEURALGIA
     Dosage: 3600 MG, UNK
  4. BOTULINUM TOXIN TYPE A [Suspect]
     Indication: MUSCLE SPASTICITY
     Dosage: 400 UNITS TO VARIOUS SPASTIC MUSCLES
     Route: 030

REACTIONS (3)
  - FALL [None]
  - CLAVICLE FRACTURE [None]
  - MUSCULAR WEAKNESS [None]
